FAERS Safety Report 6153652-2 (Version None)
Quarter: 2009Q2

REPORT INFORMATION
  Report Type: 
  Country: None (occurrence: None)
  Receive Date: 20090409
  Receipt Date: 20090330
  Transmission Date: 20091009
  Serious: Yes (Other)
  Sender: FDA-Public Use
  Company Number: 1000001192

PATIENT
  Age: 50 Year
  Sex: Female

DRUGS (7)
  1. CITALOPRAM HYDROBROMIDE [Suspect]
     Indication: DEPRESSION
     Dosage: 40 MG (40 MG, 1 IN 1 D), ORAL; 30 MG (30 MG, 1 IN 1 D), ORAL
     Route: 048
     Dates: start: 19980101, end: 20081001
  2. CITALOPRAM HYDROBROMIDE [Suspect]
     Indication: DEPRESSION
     Dosage: 40 MG (40 MG, 1 IN 1 D), ORAL; 30 MG (30 MG, 1 IN 1 D), ORAL
     Route: 048
     Dates: start: 20081001, end: 20081201
  3. CITALOPRAM HYDROBROMIDE [Suspect]
     Indication: DEPRESSION
     Dosage: 20 MG (20 MG, 1 IN 1 D), ORAL
     Route: 048
     Dates: start: 20081201
  4. TAMOXIFEN (40 MILLIGRAM, TABLETS) [Suspect]
     Indication: BREAST CANCER
     Dosage: 40 MG (40 MG, 1 IN 1 D), ORAL
     Route: 048
     Dates: start: 20061101, end: 20080301
  5. ARIMIDEX [Suspect]
     Indication: BREAST CANCER
  6. EXEMADEX [Suspect]
     Indication: BREAST CANCER
  7. PARIET (10 MILLIGRAM, TABLETS) [Concomitant]

REACTIONS (3)
  - CONDITION AGGRAVATED [None]
  - DEPRESSION [None]
  - DRUG INTERACTION [None]
